FAERS Safety Report 10174491 (Version 2)
Quarter: 2014Q3

REPORT INFORMATION
  Report Type: Spontaneous
  Country: US (occurrence: US)
  Receive Date: 20140515
  Receipt Date: 20140722
  Transmission Date: 20150326
  Serious: Yes (Other)
  Sender: FDA-Public Use
  Company Number: US-GILEAD-2014-0102393

PATIENT
  Age: 45 Year
  Sex: Female

DRUGS (6)
  1. REMODULIN [Concomitant]
     Active Substance: TREPROSTINIL
  2. DIGOXIN. [Concomitant]
     Active Substance: DIGOXIN
  3. TORSEMIDE. [Concomitant]
     Active Substance: TORSEMIDE
  4. LETAIRIS [Suspect]
     Active Substance: AMBRISENTAN
     Indication: PULMONARY HYPERTENSION
     Dosage: 5 MG, QD
     Route: 065
     Dates: start: 20110209
  5. REVATIO [Concomitant]
     Active Substance: SILDENAFIL CITRATE
  6. LETAIRIS [Suspect]
     Active Substance: AMBRISENTAN
     Indication: DRUG ABUSE

REACTIONS (12)
  - Hypotension [Unknown]
  - Oxygen saturation abnormal [Unknown]
  - Bladder neck suspension [Unknown]
  - Dizziness [Unknown]
  - Blindness [Unknown]
  - Syncope [Unknown]
  - Visual impairment [Unknown]
  - Heart rate abnormal [Unknown]
  - Device related infection [Unknown]
  - Cellulitis [Unknown]
  - Hyperventilation [Unknown]
  - Cerebrovascular accident [Unknown]

NARRATIVE: CASE EVENT DATE: 20140508
